FAERS Safety Report 5287295-X (Version None)
Quarter: 2007Q1

REPORT INFORMATION
  Report Type: 
  Country: None (occurrence: None)
  Receive Date: 20070329
  Receipt Date: 20070314
  Transmission Date: 20070707
  Serious: Yes (Other)
  Sender: FDA-Public Use
  Company Number: 238847

PATIENT
  Age: 64 Year
  Sex: Female

DRUGS (2)
  1. HERCEPTIN [Suspect]
     Indication: BREAST CANCER METASTATIC
     Dosage: SEE IMAGE
     Dates: start: 20070312
  2. TAXOL [Suspect]
     Indication: BREAST CANCER METASTATIC
     Dosage: UNK, Q3W, INTRAVENOUS
     Route: 042
     Dates: end: 20061015

REACTIONS (1)
  - HEPATITIS B [None]
